FAERS Safety Report 6767720-5 (Version None)
Quarter: 2010Q2

REPORT INFORMATION
  Report Type: 
  Country: None (occurrence: None)
  Receive Date: 20100610
  Receipt Date: 20100603
  Transmission Date: 20101027
  Serious: Yes (Death)
  Sender: FDA-Public Use
  Company Number: 007683

PATIENT
  Age: 78 Year
  Sex: Male

DRUGS (9)
  1. NEUPRO [Suspect]
     Indication: PARKINSON'S DISEASE
     Dosage: 10 MG QD TRANSDERMAL
     Route: 062
     Dates: start: 20100219, end: 20100220
  2. REQUIP [Concomitant]
  3. HYDROXOCOBALAMIN [Concomitant]
  4. BUMETANIDE [Concomitant]
  5. CO-BENELDOPA [Concomitant]
  6. CO-CARELDOPA [Concomitant]
  7. ENTACAPONE [Concomitant]
  8. ACETAMINOPHEN [Concomitant]
  9. QUETIAPINE [Concomitant]

REACTIONS (1)
  - ACUTE RESPIRATORY FAILURE [None]
